FAERS Safety Report 9694185 (Version 1)
Quarter: 2013Q4

REPORT INFORMATION
  Report Type: Spontaneous
  Country: JP (occurrence: JP)
  Receive Date: 20131118
  Receipt Date: 20131118
  Transmission Date: 20140711
  Serious: Yes (Other)
  Sender: FDA-Public Use
  Company Number: PHHY2013JP129377

PATIENT
  Age: 79 Year
  Sex: Male

DRUGS (3)
  1. CEFTRIAXONE [Suspect]
     Dosage: 2 G PER DAY
  2. CEFTRIAXONE [Suspect]
     Dosage: 4 G PER DAY
  3. AMIKACIN [Suspect]

REACTIONS (7)
  - Calculus urinary [Unknown]
  - Ureteric obstruction [Unknown]
  - Blood creatinine increased [Unknown]
  - Haematuria [Unknown]
  - Pyelocaliectasis [Unknown]
  - Anuria [Unknown]
  - Renal impairment [Unknown]
